FAERS Safety Report 12466219 (Version 1)
Quarter: 2016Q2

REPORT INFORMATION
  Report Type: Spontaneous
  Country: IT (occurrence: IT)
  Receive Date: 20160603
  Receipt Date: 20160603
  Transmission Date: 20160815
  Serious: Yes (Hospitalization)
  Sender: FDA-Public Use
  Company Number: IT-TEVA-663835ACC

PATIENT
  Age: 75 Year
  Sex: Male

DRUGS (5)
  1. MACLADIN - LABORATORI GUIDOTTI S.P.A. [Suspect]
     Active Substance: CLARITHROMYCIN
     Indication: PNEUMONITIS
     Dosage: 1 GRAM DAILY;
     Dates: start: 20160318, end: 20160324
  2. LINEZOLID. [Suspect]
     Active Substance: LINEZOLID
     Indication: PNEUMONITIS
     Dosage: 2 DOSAGE FORMS DAILY;
     Dates: start: 20160318, end: 20160321
  3. TAZOCIN - 4 G + 0,500 G POLVERE PER SOLUZIONE PER INFUSIONE [Concomitant]
     Indication: PNEUMONITIS
     Dosage: 3 DF
     Dates: start: 20160226, end: 20160315
  4. TAVOR (LORAZEPAM) [Concomitant]
     Active Substance: LORAZEPAM
     Indication: PRODUCT USED FOR UNKNOWN INDICATION
     Dosage: 3.5 MG
     Dates: end: 20160225
  5. LEVOFLOXACIN. [Concomitant]
     Active Substance: LEVOFLOXACIN
     Indication: PNEUMONITIS
     Dates: start: 20160229, end: 20160317

REACTIONS (3)
  - Disorientation [Recovered/Resolved]
  - Epilepsy [Recovered/Resolved]
  - Status epilepticus [None]

NARRATIVE: CASE EVENT DATE: 20160321
